FAERS Safety Report 6410944-7 (Version None)
Quarter: 2009Q4

REPORT INFORMATION
  Report Type: 
  Country: None (occurrence: None)
  Receive Date: 20091022
  Receipt Date: 20091009
  Transmission Date: 20100525
  Serious: Yes (Other)
  Sender: FDA-Public Use
  Company Number: PHHY2009JP42339

PATIENT
  Age: 37 Year
  Sex: Female

DRUGS (10)
  1. CYCLOSPORINE [Suspect]
     Indication: RENAL TRANSPLANT
     Dosage: 300 MG DAILY
     Dates: start: 20020201
  2. CYCLOSPORINE [Suspect]
     Dosage: 150 MG DAILY
     Dates: start: 20020101
  3. MYCOPHENOLATE MOFETIL [Suspect]
     Indication: RENAL TRANSPLANT
     Dosage: 1000 MG PER DAY
     Dates: start: 20020201
  4. METHYLPREDNISOLONE [Suspect]
     Indication: RENAL TRANSPLANT
     Dosage: UNK
     Dates: start: 20020201, end: 20020101
  5. SIMULECT [Suspect]
     Indication: RENAL TRANSPLANT
     Dosage: 20 MG, UNK
     Route: 042
     Dates: start: 20020201
  6. AZATHIOPRINE [Concomitant]
     Dosage: 25 MG/DAY
  7. LANTUS [Concomitant]
     Indication: TYPE 1 DIABETES MELLITUS
     Dosage: 11 U, QD , BEFORE SLEEP
     Dates: start: 20040101
  8. HUMALOG [Concomitant]
     Indication: TYPE 1 DIABETES MELLITUS
  9. PENFILL N [Concomitant]
     Indication: TYPE 1 DIABETES MELLITUS
     Dosage: ONCE A DAY BEFORE SLEEP
     Dates: end: 20040101
  10. PENFILL R [Concomitant]
     Indication: TYPE 1 DIABETES MELLITUS
     Dosage: 3  TIMES A DAY BEFORE MEALS

REACTIONS (17)
  - ANAEMIA [None]
  - BETA 2 MICROGLOBULIN INCREASED [None]
  - BLOOD GLUCOSE ABNORMAL [None]
  - CAESAREAN SECTION [None]
  - COMPLICATIONS OF TRANSPLANTED KIDNEY [None]
  - DRUG EXPOSURE DURING PREGNANCY [None]
  - HYPOGLYCAEMIA UNAWARENESS [None]
  - LOSS OF CONSCIOUSNESS [None]
  - OEDEMA PERIPHERAL [None]
  - PREGNANCY INDUCED HYPERTENSION [None]
  - PROTEINURIA [None]
  - PYELONEPHRITIS [None]
  - RENAL IMPAIRMENT [None]
  - RETINAL LASER COAGULATION [None]
  - ROAD TRAFFIC ACCIDENT [None]
  - VITREOUS FLOATERS [None]
  - VITREOUS HAEMORRHAGE [None]
